FAERS Safety Report 9217926 (Version 3)
Quarter: 2013Q3

REPORT INFORMATION
  Report Type: Report from Study
  Country: CH (occurrence: CH)
  Receive Date: 20130408
  Receipt Date: 20130712
  Transmission Date: 20140515
  Serious: Yes (Hospitalization, Other)
  Sender: FDA-Public Use
  Company Number: CH-TEVA-396938USA

PATIENT
  Age: 73 Year
  Sex: Male
  Weight: 73.8 kg

DRUGS (3)
  1. BENDAMUSTINE [Suspect]
     Indication: LYMPHOMA
     Dosage: UNKNOWN/D
     Route: 042
     Dates: start: 20130218
  2. RITUXIMAB [Suspect]
     Indication: LYMPHOMA
     Route: 042
     Dates: start: 20130218
  3. LENALIDOMIDE [Suspect]
     Indication: LYMPHOMA
     Route: 048
     Dates: start: 20130218

REACTIONS (4)
  - Ventricular tachycardia [Recovered/Resolved]
  - Arthritis [Recovered/Resolved]
  - Arthritis [Recovered/Resolved]
  - Pyrexia [Recovered/Resolved]
